FAERS Safety Report 11546676 (Version 3)
Quarter: 2015Q4

REPORT INFORMATION
  Report Type: Spontaneous
  Country: US (occurrence: US)
  Receive Date: 20150924
  Receipt Date: 20151014
  Transmission Date: 20160304
  Serious: Yes (Other)
  Sender: FDA-Public Use
  Company Number: US-GLAXOSMITHKLINE-US2015GSK136478

PATIENT
  Sex: Female

DRUGS (1)
  1. ADVAIR HFA [Suspect]
     Active Substance: FLUTICASONE PROPIONATE\SALMETEROL XINAFOATE
     Indication: CHRONIC OBSTRUCTIVE PULMONARY DISEASE
     Dosage: UNK
     Dates: start: 2011

REACTIONS (10)
  - Hypertension [Unknown]
  - Cardiac aneurysm [Unknown]
  - Aortic aneurysm [Unknown]
  - Gastric disorder [Unknown]
  - Thyroid disorder [Unknown]
  - Cardiac disorder [Not Recovered/Not Resolved]
  - Macular degeneration [Unknown]
  - Pulmonary artery aneurysm [Unknown]
  - Renal disorder [Not Recovered/Not Resolved]
  - Arthritis [Not Recovered/Not Resolved]
